FAERS Safety Report 8269083-5 (Version None)
Quarter: 2012Q1

REPORT INFORMATION
  Report Type: 
  Country: None (occurrence: None)
  Receive Date: 20120327
  Receipt Date: 20091002
  Transmission Date: 20120608
  Serious: Yes (Other)
  Sender: FDA-Public Use
  Company Number: PHEH2009US13168

PATIENT
  Sex: Female

DRUGS (2)
  1. ANTIVIRALS NOS [Concomitant]
  2. GLEEVEC [Suspect]
     Dosage: 300 MG, QD

REACTIONS (1)
  - NEUTROPENIA [None]
